FAERS Safety Report 6256287-6 (Version None)
Quarter: 2009Q3

REPORT INFORMATION
  Report Type: 
  Country: None (occurrence: None)
  Receive Date: 20090706
  Receipt Date: 20090622
  Transmission Date: 20100115
  Serious: Yes (Death, Hospitalization)
  Sender: FDA-Public Use
  Company Number: DE-BAYER-200815017GPV

PATIENT
  Age: 58 Year

DRUGS (9)
  1. ZEVALIN [Suspect]
     Indication: STEM CELL TRANSPLANT
     Dosage: TOTAL DAILY DOSE: 0.4 MCI
     Route: 042
  2. ZEVALIN [Suspect]
     Dosage: DAY -21
     Route: 042
  3. YTRACIS [Suspect]
     Indication: STEM CELL TRANSPLANT
     Dosage: TOTAL DAILY DOSE: 0.4 MCI
     Route: 042
  4. FLUDARABINE PHOSPHATE [Suspect]
     Indication: STEM CELL TRANSPLANT
     Dosage: TOTAL DAILY DOSE: 30 MG/M2
     Route: 065
  5. INDIUM 111 [Suspect]
     Indication: STEM CELL TRANSPLANT
     Dosage: DAY -21
     Route: 042
  6. RITUXIMAB [Suspect]
     Indication: STEM CELL TRANSPLANT
     Route: 042
  7. RITUXIMAB [Suspect]
     Route: 042
  8. CYCLOSPORINE [Concomitant]
     Indication: IMMUNOSUPPRESSION
  9. MYCOPHENOLATE MOFETIL [Concomitant]
     Indication: IMMUNOSUPPRESSION

REACTIONS (3)
  - INFECTION [None]
  - MULTI-ORGAN FAILURE [None]
  - SEPSIS [None]
